FAERS Safety Report 25509435 (Version 2)
Quarter: 2025Q3

REPORT INFORMATION
  Report Type: Spontaneous
  Country: EU (occurrence: EU)
  Receive Date: 20250703
  Receipt Date: 20250729
  Transmission Date: 20251020
  Serious: Yes (Death, Other)
  Sender: AUROBINDO
  Company Number: EU-EMA-DD-20221019-216281-100749

PATIENT
  Age: 14 Year
  Sex: Male

DRUGS (7)
  1. AZACITIDINE [Suspect]
     Active Substance: AZACITIDINE
     Indication: Acute biphenotypic leukaemia
     Dosage: 75 MILLIGRAM/SQ. METER, ONCE A DAY(75 MILLIGRAM/SQ. METER, QD FOR 7 DAYS IN A CYCLE)
     Route: 065
  2. FLUDARABINE [Suspect]
     Active Substance: FLUDARABINE PHOSPHATE
     Indication: Acute biphenotypic leukaemia
     Route: 065
  3. CYTARABINE [Suspect]
     Active Substance: CYTARABINE
     Indication: Acute biphenotypic leukaemia
     Route: 065
  4. GEMTUZUMAB OZOGAMICIN [Suspect]
     Active Substance: GEMTUZUMAB OZOGAMICIN
     Indication: Acute biphenotypic leukaemia
     Route: 065
  5. IDARUBICIN [Suspect]
     Active Substance: IDARUBICIN
     Indication: Acute biphenotypic leukaemia
     Route: 065
  6. VENETOCLAX [Suspect]
     Active Substance: VENETOCLAX
     Indication: Acute biphenotypic leukaemia
     Dosage: UNK UNK, ONCE A DAY((INITAIL ESCALATING DOSE OF 100?400 MG/DAY FOR FIRST 3 DAYS)
     Route: 065
  7. VENETOCLAX [Suspect]
     Active Substance: VENETOCLAX
     Dosage: 400 MILLIGRAM, ONCE A DAY(ADMINISTERED IN 28 DAYS CYCLES, WITH AUGMENTED DOSING SINCE 5TH CYCLE)
     Route: 065

REACTIONS (4)
  - Condition aggravated [Fatal]
  - Bronchopulmonary aspergillosis [Recovered/Resolved]
  - Febrile neutropenia [Recovered/Resolved]
  - Drug ineffective [Unknown]
